FAERS Safety Report 4800674-7 (Version None)
Quarter: 2005Q3

REPORT INFORMATION
  Report Type: 
  Country: None (occurrence: None)
  Receive Date: 20050929
  Receipt Date: 20050810
  Transmission Date: 20060218
  Serious: No
  Sender: FDA-Public Use
  Company Number: 05P-163-0308192-00

PATIENT
  Age: 65 Year
  Sex: Female
  Weight: 61.2356 kg

DRUGS (10)
  1. HUMIRA [Suspect]
     Indication: RHEUMATOID ARTHRITIS
     Dosage: 40 MG, 1 IN 2 WK, SUBCUTANEOUS
     Route: 058
     Dates: start: 20050323
  2. CELEXOCIB [Concomitant]
  3. LEFLUNOMIDE [Concomitant]
  4. METHOTREXATE [Concomitant]
  5. FOLIC ACID [Concomitant]
  6. ESTRADIOL [Concomitant]
  7. ASCORBIC ACID [Concomitant]
  8. CALCIUM GLUCONATE [Concomitant]
  9. GLUCOSAMINE [Concomitant]
  10. MULTI-VITAMINS [Concomitant]

REACTIONS (2)
  - INJECTION SITE RASH [None]
  - INJECTION SITE WARMTH [None]
